FAERS Safety Report 5156333-7 (Version None)
Quarter: 2006Q4

REPORT INFORMATION
  Report Type: 
  Country: None (occurrence: None)
  Receive Date: 20061122
  Receipt Date: 20061114
  Transmission Date: 20070319
  Serious: Yes (Hospitalization)
  Sender: FDA-Public Use
  Company Number: SE-GLAXOSMITHKLINE-B0447092A

PATIENT
  Sex: Male

DRUGS (4)
  1. LEUKERAN [Suspect]
     Indication: CHRONIC LYMPHOCYTIC LEUKAEMIA
     Dosage: 4MG THREE TIMES PER DAY
     Route: 048
     Dates: start: 20061013, end: 20061016
  2. ALLOPURINOL [Concomitant]
  3. SIMVASTATIN [Concomitant]
  4. TROMBYL [Concomitant]

REACTIONS (4)
  - BONE MARROW FAILURE [None]
  - COUGH [None]
  - PYREXIA [None]
  - WHITE BLOOD CELL COUNT INCREASED [None]
